FAERS Safety Report 25235485 (Version 1)
Quarter: 2025Q2

REPORT INFORMATION
  Report Type: Spontaneous
  Country: FR (occurrence: FR)
  Receive Date: 20250424
  Receipt Date: 20250424
  Transmission Date: 20250717
  Serious: Yes (Death, Hospitalization)
  Sender: PFIZER
  Company Number: None

PATIENT
  Age: 67 Year
  Sex: Female
  Weight: 70 kg

DRUGS (4)
  1. CARBOPLATIN [Suspect]
     Active Substance: CARBOPLATIN
     Indication: Adenocarcinoma of the cervix
     Dosage: 1 DF, 1X/DAY, 1 TREATMENT IN TOTAL
     Route: 042
     Dates: start: 20240209, end: 20240209
  2. PACLITAXEL [Suspect]
     Active Substance: PACLITAXEL
     Indication: Adenocarcinoma of the cervix
     Dosage: 1 DF, 1X/DAY, 1 TREATMENT IN TOTAL
     Route: 042
     Dates: start: 20240209, end: 20240209
  3. BEVACIZUMAB [Suspect]
     Active Substance: BEVACIZUMAB
     Indication: Adenocarcinoma of the cervix
     Dosage: 1 DF, 1X/DAY, 1 TREATMENT IN TOTAL
     Route: 042
     Dates: start: 20240209, end: 20240209
  4. KEYTRUDA [Suspect]
     Active Substance: PEMBROLIZUMAB
     Indication: Adenocarcinoma of the cervix
     Dosage: 1 DF, 1X/DAY, 1 TREATMENT IN TOTAL
     Route: 042
     Dates: start: 20240209, end: 20240209

REACTIONS (4)
  - Myocarditis [Fatal]
  - Myositis [Fatal]
  - Disease recurrence [Fatal]
  - Off label use [Unknown]

NARRATIVE: CASE EVENT DATE: 20240302
